FAERS Safety Report 8410713-2 (Version None)
Quarter: 2012Q2

REPORT INFORMATION
  Report Type: 
  Country: None (occurrence: None)
  Receive Date: 20120605
  Receipt Date: 20120524
  Transmission Date: 20120825
  Serious: Yes (Hospitalization, Other)
  Sender: FDA-Public Use
  Company Number: US-ELI_LILLY_AND_COMPANY-US201009001925

PATIENT
  Sex: Female
  Weight: 65.6 kg

DRUGS (1)
  1. FORTEO [Suspect]
     Indication: OSTEOPOROSIS
     Dosage: 20 UG, DAILY (1/D)
     Dates: start: 20100701

REACTIONS (5)
  - FALL [None]
  - HIP FRACTURE [None]
  - DIZZINESS [None]
  - BONE PAIN [None]
  - PAIN IN EXTREMITY [None]
